FAERS Safety Report 13545318 (Version 1)
Quarter: 2017Q2

REPORT INFORMATION
  Report Type: Spontaneous
  Country: CA (occurrence: CA)
  Receive Date: 20170515
  Receipt Date: 20170515
  Transmission Date: 20170830
  Serious: Yes (Hospitalization)
  Sender: FDA-Public Use
  Company Number: CA-JNJFOC-20170509654

PATIENT
  Age: 66 Year
  Sex: Male
  Weight: 117 kg

DRUGS (22)
  1. PRO-LORAZEPAM [Concomitant]
     Route: 065
  2. PMS-ERYTHROMYCIN [Concomitant]
     Route: 047
  3. NAPROXEN. [Concomitant]
     Active Substance: NAPROXEN
     Route: 065
  4. VICTOZA [Concomitant]
     Active Substance: LIRAGLUTIDE
     Route: 058
  5. INVOKANA [Suspect]
     Active Substance: CANAGLIFLOZIN
     Indication: DIABETES MELLITUS
     Route: 048
  6. CLOTRIMADERM [Concomitant]
     Route: 065
  7. FENOFIBRATE. [Concomitant]
     Active Substance: FENOFIBRATE
     Route: 065
  8. SYNTHROID [Concomitant]
     Active Substance: LEVOTHYROXINE SODIUM
     Route: 065
  9. ACETAMINOPHEN. [Concomitant]
     Active Substance: ACETAMINOPHEN
     Route: 065
  10. APO-CILAZAPRIL/HYDROCHLOROTHIAZIDE [Concomitant]
     Route: 065
  11. DEXILANT [Concomitant]
     Active Substance: DEXLANSOPRAZOLE
     Route: 065
  12. PMS-OMEPRAZOLE [Concomitant]
     Route: 065
  13. HYDROXYZINE [Concomitant]
     Active Substance: HYDROXYZINE HYDROCHLORIDE
     Route: 065
  14. DILTIAZEM. [Concomitant]
     Active Substance: DILTIAZEM
     Route: 065
  15. GLAXAL BASE [Concomitant]
     Route: 065
  16. ROSUVASTATIN. [Concomitant]
     Active Substance: ROSUVASTATIN
     Route: 065
  17. CLOPIDOGREL [Concomitant]
     Active Substance: CLOPIDOGREL BISULFATE
     Route: 065
  18. FUROSEMIDE. [Concomitant]
     Active Substance: FUROSEMIDE
     Route: 065
  19. LANTUS [Concomitant]
     Active Substance: INSULIN GLARGINE
     Route: 058
  20. PRO-AZITHROMYCINE [Concomitant]
     Route: 065
  21. NOVORAPID [Concomitant]
     Active Substance: INSULIN ASPART
     Route: 058
  22. PRO-METFORMIN [Concomitant]
     Active Substance: METFORMIN HYDROCHLORIDE
     Route: 065

REACTIONS (7)
  - Skin exfoliation [Not Recovered/Not Resolved]
  - Skin plaque [Not Recovered/Not Resolved]
  - Erythema [Not Recovered/Not Resolved]
  - Pruritus [Not Recovered/Not Resolved]
  - Rash papular [Not Recovered/Not Resolved]
  - Peau d^orange [Not Recovered/Not Resolved]
  - Skin irritation [Not Recovered/Not Resolved]
